FAERS Safety Report 16768613 (Version 2)
Quarter: 2019Q3

REPORT INFORMATION
  Report Type: Report from Study
  Country: US (occurrence: US)
  Receive Date: 20190903
  Receipt Date: 20190930
  Transmission Date: 20191005
  Serious: Yes (Hospitalization, Other)
  Sender: FDA-Public Use
  Company Number: US-SHIRE-US201928435

PATIENT
  Age: 68 Year
  Sex: Female

DRUGS (2)
  1. GATTEX [Suspect]
     Active Substance: TEDUGLUTIDE\WATER
     Dosage: 3.2 MILLIGRAM, 1X/DAY:QD
     Route: 058
     Dates: start: 20190701
  2. GATTEX [Suspect]
     Active Substance: TEDUGLUTIDE\WATER
     Indication: SHORT-BOWEL SYNDROME
     Dosage: 0.3200 UNK
     Route: 058
     Dates: start: 20190528

REACTIONS (2)
  - Weight decreased [Unknown]
  - Vascular device infection [Recovered/Resolved]

NARRATIVE: CASE EVENT DATE: 20190813
